FAERS Safety Report 19045883 (Version 1)
Quarter: 2021Q1

REPORT INFORMATION
  Report Type: Report from Study
  Country: CA (occurrence: CA)
  Receive Date: 20210323
  Receipt Date: 20210323
  Transmission Date: 20210420
  Serious: Yes (Hospitalization, Other)
  Sender: FDA-Public Use
  Company Number: NVSC2021CA061535

PATIENT
  Age: 22 Year
  Sex: Female
  Weight: 50 kg

DRUGS (3)
  1. TRAMETINIB [Suspect]
     Active Substance: TRAMETINIB
     Indication: OVARIAN CANCER
     Dosage: 2 MG
     Route: 048
     Dates: start: 20200630, end: 20201029
  2. TRAMETINIB [Suspect]
     Active Substance: TRAMETINIB
     Dosage: 1.5 MG
     Route: 048
     Dates: start: 20201208, end: 20210105
  3. TRAMETINIB [Suspect]
     Active Substance: TRAMETINIB
     Dosage: UNK
     Route: 048
     Dates: start: 20210112, end: 20200126

REACTIONS (11)
  - Haemoglobin decreased [Recovering/Resolving]
  - Abdominal pain upper [Unknown]
  - Small intestinal obstruction [Recovered/Resolved]
  - Visual acuity reduced [Recovered/Resolved]
  - Blood creatinine increased [Recovering/Resolving]
  - Pyrexia [Recovering/Resolving]
  - Pneumatosis intestinalis [Recovering/Resolving]
  - White blood cell count increased [Recovering/Resolving]
  - Pyrexia [Recovered/Resolved]
  - Cholecystitis [Recovering/Resolving]
  - Liver function test increased [Unknown]

NARRATIVE: CASE EVENT DATE: 20200817
